FAERS Safety Report 25353970 (Version 5)
Quarter: 2025Q3

REPORT INFORMATION
  Report Type: Spontaneous
  Country: US (occurrence: US)
  Receive Date: 20250523
  Receipt Date: 20250916
  Transmission Date: 20251021
  Serious: Yes (Hospitalization, Disabling, Other)
  Sender: SANOFI AVENTIS
  Company Number: US-SA-2025SA145004

PATIENT
  Age: 77 Year
  Sex: Male
  Weight: 72.73 kg

DRUGS (4)
  1. DUPIXENT [Suspect]
     Active Substance: DUPILUMAB
     Indication: Sinus polyp
     Dosage: 300 MG, QOW
     Route: 058
     Dates: start: 20240103, end: 202501
  2. DUPIXENT [Suspect]
     Active Substance: DUPILUMAB
     Indication: Nasal polyps
     Dosage: 300 MG, QOW
     Route: 058
     Dates: start: 202505, end: 2025
  3. DUPIXENT [Suspect]
     Active Substance: DUPILUMAB
     Indication: Taste disorder
  4. DUPIXENT [Suspect]
     Active Substance: DUPILUMAB
     Indication: Parosmia

REACTIONS (21)
  - Neuropathy peripheral [Unknown]
  - Alopecia [Unknown]
  - Lacrimation increased [Not Recovered/Not Resolved]
  - Skin disorder [Recovering/Resolving]
  - Asthma [Recovering/Resolving]
  - Pain of skin [Recovering/Resolving]
  - Eosinophil count increased [Recovering/Resolving]
  - Arthralgia [Not Recovered/Not Resolved]
  - Sinus operation [Unknown]
  - Ageusia [Unknown]
  - Anosmia [Unknown]
  - Seasonal allergy [Recovering/Resolving]
  - Sciatica [Unknown]
  - Pustule [Unknown]
  - Protein total increased [Not Recovered/Not Resolved]
  - Skin exfoliation [Unknown]
  - Myalgia [Unknown]
  - Vision blurred [Unknown]
  - Dry eye [Not Recovered/Not Resolved]
  - Product use in unapproved indication [Unknown]
  - Drug effective for unapproved indication [Unknown]

NARRATIVE: CASE EVENT DATE: 20250101
